FAERS Safety Report 19770202 (Version 1)
Quarter: 2021Q3

REPORT INFORMATION
  Report Type: Spontaneous
  Country: US (occurrence: US)
  Receive Date: 20210901
  Receipt Date: 20210901
  Transmission Date: 20211014
  Serious: No
  Sender: FDA-Public Use
  Company Number: US-DRREDDYS-SPO/USA/21/0139490

PATIENT
  Age: 18 Year
  Sex: Female

DRUGS (1)
  1. ACCUTANE [Suspect]
     Active Substance: ISOTRETINOIN
     Indication: PRODUCT USED FOR UNKNOWN INDICATION
     Dosage: RMA ISSUE DATE: 4/30/2021 12:00:00 AM, 6/10/2021 12:00:00 AM, 7/22/2021 12:00:00 AM

REACTIONS (7)
  - Headache [Unknown]
  - Contusion [Unknown]
  - Nausea [Unknown]
  - COVID-19 [Unknown]
  - Vomiting [Unknown]
  - Dyspnoea [Unknown]
  - Musculoskeletal chest pain [Unknown]
